FAERS Safety Report 11617236 (Version 2)
Quarter: 2015Q4

REPORT INFORMATION
  Report Type: Spontaneous
  Country: US (occurrence: US)
  Receive Date: 20151009
  Receipt Date: 20151009
  Transmission Date: 20160304
  Serious: Yes (Other)
  Sender: FDA-Public Use
  Company Number: US-ELITE PHARMACEUTICALS, INC.-2015ELT00005

PATIENT
  Age: 30 Year
  Sex: Male

DRUGS (2)
  1. NARCOTICS [Suspect]
     Active Substance: UNSPECIFIED INGREDIENT
  2. HYDROMORPHONE HYDROCHLORIDE. [Suspect]
     Active Substance: HYDROMORPHONE HYDROCHLORIDE
     Dosage: UNK

REACTIONS (7)
  - Aspiration [Unknown]
  - Pulmonary fibrosis [Unknown]
  - Product deposit [Unknown]
  - Haemoptysis [Unknown]
  - Treatment failure [None]
  - Granulomatosis with polyangiitis [None]
  - Drug abuse [Unknown]

NARRATIVE: CASE EVENT DATE: 2006
